FAERS Safety Report 5847742-9 (Version None)
Quarter: 2008Q3

REPORT INFORMATION
  Report Type: 
  Country: None (occurrence: None)
  Receive Date: 20080814
  Receipt Date: 20080731
  Transmission Date: 20090109
  Serious: Yes (Other)
  Sender: FDA-Public Use
  Company Number: 2008S1013543

PATIENT
  Age: 52 Year
  Sex: Female

DRUGS (4)
  1. ATENOLOL [Suspect]
     Indication: BLOOD PRESSURE
     Dosage: 50 MG TABLET; ORAL;EVERY MORNING; 50 MG; TABLET;TWICE A DAY
     Route: 048
     Dates: start: 20030101, end: 20080615
  2. ATENOLOL [Suspect]
     Indication: BLOOD PRESSURE
     Dosage: 50 MG TABLET; ORAL;EVERY MORNING; 50 MG; TABLET;TWICE A DAY
     Route: 048
     Dates: start: 20080616
  3. TRESSOR B [Concomitant]
  4. ZINC (ZINC) [Concomitant]

REACTIONS (3)
  - ALOPECIA [None]
  - ANXIETY [None]
  - DEPRESSION [None]
